FAERS Safety Report 15954393 (Version 1)
Quarter: 2019Q1

REPORT INFORMATION
  Report Type: Spontaneous
  Country: CN (occurrence: CN)
  Receive Date: 20190212
  Receipt Date: 20190212
  Transmission Date: 20190417
  Serious: Yes (Other)
  Sender: FDA-Public Use
  Company Number: CN-FOUNDATIONCONSUMERHC-2019-CN-000032

PATIENT
  Sex: Female

DRUGS (1)
  1. LEVONORGESTREL (UNSPECIFIED) [Suspect]
     Active Substance: LEVONORGESTREL
     Indication: CONTRACEPTION
     Dosage: (1.5 MG)

REACTIONS (4)
  - Drug ineffective [Unknown]
  - Coma [Unknown]
  - Vomiting [Unknown]
  - Pregnancy after post coital contraception [Unknown]
